FAERS Safety Report 6894859-6 (Version None)
Quarter: 2010Q3

REPORT INFORMATION
  Report Type: 
  Country: None (occurrence: None)
  Receive Date: 20100802
  Receipt Date: 20100719
  Transmission Date: 20110219
  Serious: Yes (Other)
  Sender: FDA-Public Use
  Company Number: TR-ELI_LILLY_AND_COMPANY-TR201007004310

PATIENT
  Sex: Female
  Weight: 2.33 kg

DRUGS (4)
  1. HUMULIN R [Suspect]
     Dosage: 3 IU, EACH MORNING
     Route: 064
  2. HUMULIN R [Suspect]
     Dosage: 4 IU, OTHER (AT NOON)
     Route: 064
  3. HUMULIN R [Suspect]
     Dosage: 4 IU, EACH EVENING
     Route: 064
  4. HUMULIN N [Suspect]
     Dosage: 4 IU, DAILY (1/D) (AT NIGHT)
     Route: 064

REACTIONS (5)
  - DRUG EXPOSURE DURING PREGNANCY [None]
  - HYPOGLYCAEMIA NEONATAL [None]
  - NEONATAL ASPIRATION [None]
  - PREMATURE BABY [None]
  - SMALL FOR DATES BABY [None]
